FAERS Safety Report 21297738 (Version 1)
Quarter: 2022Q3

REPORT INFORMATION
  Report Type: Spontaneous
  Country: GB (occurrence: GB)
  Receive Date: 20220906
  Receipt Date: 20220906
  Transmission Date: 20221026
  Serious: Yes (Other)
  Sender: FDA-Public Use
  Company Number: GB-JNJFOC-20220850650

PATIENT

DRUGS (3)
  1. ACYCLOVIR [Suspect]
     Active Substance: ACYCLOVIR
     Indication: Oral herpes
     Dosage: UNK
     Route: 065
  2. HYDROCORTISONE\MICONAZOLE NITRATE [Suspect]
     Active Substance: HYDROCORTISONE\MICONAZOLE NITRATE
     Indication: Tinea pedis
     Dosage: UNK
     Route: 065
  3. RISPERDAL [Suspect]
     Active Substance: RISPERIDONE
     Indication: Psychotic disorder
     Dosage: 0.5 MG, QD
     Route: 065

REACTIONS (43)
  - Erectile dysfunction [Not Recovered/Not Resolved]
  - Medication error [Unknown]
  - Skin disorder [Not Recovered/Not Resolved]
  - Skin discolouration [Not Recovered/Not Resolved]
  - Skin infection [Not Recovered/Not Resolved]
  - Skin hypertrophy [Not Recovered/Not Resolved]
  - Skin lesion [Not Recovered/Not Resolved]
  - Hypersensitivity [Not Recovered/Not Resolved]
  - Acne [Not Recovered/Not Resolved]
  - CD4 lymphocytes decreased [Unknown]
  - Infection [Not Recovered/Not Resolved]
  - Ejaculation disorder [Recovered/Resolved]
  - Alopecia [Not Recovered/Not Resolved]
  - Fatigue [Not Recovered/Not Resolved]
  - Weight increased [Recovered/Resolved with Sequelae]
  - Erectile dysfunction [Recovered/Resolved]
  - Increased appetite [Recovering/Resolving]
  - Decreased appetite [Recovering/Resolving]
  - Depression [Not Recovered/Not Resolved]
  - Anxiety [Not Recovered/Not Resolved]
  - Restlessness [Not Recovered/Not Resolved]
  - Abdominal pain [Recovered/Resolved]
  - Nausea [Recovered/Resolved]
  - Oropharyngeal pain [Not Recovered/Not Resolved]
  - Constipation [Recovered/Resolved]
  - Diarrhoea [Recovered/Resolved]
  - Dyspepsia [Recovered/Resolved]
  - Dry mouth [Not Recovered/Not Resolved]
  - Toothache [Recovering/Resolving]
  - Rash [Recovered/Resolved]
  - Asthenia [Not Recovered/Not Resolved]
  - Eye movement disorder [Recovered/Resolved]
  - Eyelid margin crusting [Recovered/Resolved]
  - Skin fissures [Not Recovered/Not Resolved]
  - Rhabdomyolysis [Recovered/Resolved]
  - Rash [Not Recovered/Not Resolved]
  - Dandruff [Not Recovered/Not Resolved]
  - Muscular weakness [Recovered/Resolved]
  - Weight decreased [Recovering/Resolving]
  - Dry skin [Recovered/Resolved]
  - Irritability [Not Recovered/Not Resolved]
  - Drug interaction [Unknown]
  - Headache [Not Recovered/Not Resolved]

NARRATIVE: CASE EVENT DATE: 20220117
